FAERS Safety Report 16165565 (Version 14)
Quarter: 2025Q2

REPORT INFORMATION
  Report Type: Report from Study
  Country: JP (occurrence: JP)
  Receive Date: 20190405
  Receipt Date: 20250613
  Transmission Date: 20250717
  Serious: Yes (Hospitalization, Other)
  Sender: GILEAD
  Company Number: JP-JT-EVA201900947GILEAD-001

PATIENT
  Age: 59 Year
  Sex: Male

DRUGS (24)
  1. EMTRICITABINE\TENOFOVIR [Suspect]
     Active Substance: EMTRICITABINE\TENOFOVIR
     Indication: HIV infection
     Dosage: 1 DOSAGE FORM, QD
     Route: 048
     Dates: start: 20170223, end: 20240202
  2. BICTEGRAVIR\EMTRICITABINE\TENOFOVIR ALAFENAMIDE [Suspect]
     Active Substance: BICTEGRAVIR\EMTRICITABINE\TENOFOVIR ALAFENAMIDE
     Indication: HIV infection
     Dosage: 1 DOSAGE FORM, QD
     Route: 048
     Dates: start: 20240202
  3. LENACAPAVIR [Suspect]
     Active Substance: LENACAPAVIR
     Indication: HIV infection
     Dosage: 2 DOSAGE FORM, QD
     Route: 048
     Dates: start: 20240119, end: 20240119
  4. LENACAPAVIR [Suspect]
     Active Substance: LENACAPAVIR
     Dosage: 2 DOSAGE FORM, QD
     Route: 048
     Dates: start: 20240120, end: 20240120
  5. LENACAPAVIR [Suspect]
     Active Substance: LENACAPAVIR
     Dosage: 1 DOSAGE FORM, QD
     Route: 048
     Dates: start: 20240126, end: 20240126
  6. LENACAPAVIR [Suspect]
     Active Substance: LENACAPAVIR
     Indication: HIV infection
     Route: 058
     Dates: start: 20240202
  7. LENACAPAVIR [Suspect]
     Active Substance: LENACAPAVIR
     Route: 058
     Dates: start: 20240719
  8. NORVIR [Suspect]
     Active Substance: RITONAVIR
     Indication: HIV infection
     Dosage: 200 MG, QD
     Route: 048
     Dates: start: 20170223, end: 20240202
  9. PREZISTA [Suspect]
     Active Substance: DARUNAVIR ETHANOLATE
     Indication: HIV infection
     Dosage: 1200 MG, QD
     Route: 048
     Dates: start: 20170223, end: 20240202
  10. ISENTRESS [Suspect]
     Active Substance: RALTEGRAVIR POTASSIUM
     Indication: HIV infection
     Dosage: 800 MG, QD
     Route: 048
     Dates: start: 20170223, end: 20220927
  11. INTELENCE [Suspect]
     Active Substance: ETRAVIRINE
     Indication: HIV infection
     Dosage: 400 MG, QD
     Route: 048
     Dates: start: 20170223, end: 20220927
  12. TIVICAY [Concomitant]
     Active Substance: DOLUTEGRAVIR SODIUM
     Indication: HIV infection
     Dosage: 50 MG, QD
     Route: 048
     Dates: start: 20220928, end: 20240202
  13. PIFELTRO [Concomitant]
     Active Substance: DORAVIRINE
     Indication: HIV infection
     Dosage: 100 MG, QD
     Route: 048
     Dates: start: 20220928
  14. RABEPRAZOLE SODIUM [Concomitant]
     Active Substance: RABEPRAZOLE SODIUM
  15. LIVACT [ISOLEUCINE;LEUCINE;VALINE] [Concomitant]
     Indication: Liver disorder
  16. URSO [Concomitant]
     Active Substance: URSODIOL
  17. ADYNOVATE [Concomitant]
     Active Substance: ANTIHEMOPHILIC FACTOR, HUMAN RECOMBINANT
  18. CARBOCYSTEINE [Concomitant]
     Active Substance: CARBOCYSTEINE
     Dates: start: 20190227
  19. VESICARE [Concomitant]
     Active Substance: SOLIFENACIN SUCCINATE
     Dates: start: 20191030
  20. PROGRAF [Concomitant]
     Active Substance: TACROLIMUS
     Indication: Prophylaxis against transplant rejection
     Dates: start: 202402
  21. CELLCEPT [Concomitant]
     Active Substance: MYCOPHENOLATE MOFETIL
     Indication: Prophylaxis against transplant rejection
     Dates: start: 202402
  22. PREDNISOLONE [Concomitant]
     Active Substance: PREDNISOLONE
     Indication: Prophylaxis against transplant rejection
     Dates: start: 202402, end: 20240606
  23. VONOPRAZAN FUMARATE [Concomitant]
     Active Substance: VONOPRAZAN FUMARATE
     Dates: start: 202402
  24. TACROLIMUS [Concomitant]
     Active Substance: TACROLIMUS
     Indication: Prophylaxis against transplant rejection
     Dates: start: 20241016

REACTIONS (6)
  - Osteoporosis [Not Recovered/Not Resolved]
  - Hepatocellular carcinoma [Recovered/Resolved]
  - Type 2 diabetes mellitus [Not Recovered/Not Resolved]
  - Hypertonic bladder [Not Recovered/Not Resolved]
  - Liver transplant [Not Recovered/Not Resolved]
  - Drug resistance [Not Recovered/Not Resolved]

NARRATIVE: CASE EVENT DATE: 20170622
